FAERS Safety Report 9507602 (Version 3)
Quarter: 2013Q3

REPORT INFORMATION
  Report Type: Spontaneous
  Country: IT (occurrence: IT)
  Receive Date: 20130909
  Receipt Date: 20130924
  Transmission Date: 20140515
  Serious: Yes (Life-Threatening, Hospitalization, Other)
  Sender: FDA-Public Use
  Company Number: IT-ELI_LILLY_AND_COMPANY-IT201308009392

PATIENT
  Age: 47 Year
  Sex: Female
  Weight: 90 kg

DRUGS (6)
  1. ZYPREXA [Suspect]
     Dosage: 20 DF, UNKNOWN
     Route: 048
     Dates: start: 20130722, end: 20130722
  2. HALDOL /00027401/ [Suspect]
     Dosage: 15 MG, UNKNOWN
     Route: 048
     Dates: start: 20130722, end: 20130722
  3. AKINETON /00079501/ [Suspect]
     Dosage: 24 MG, UNKNOWN
     Route: 048
     Dates: start: 20130722, end: 20130722
  4. DEPAKIN CHRONO [Suspect]
     Dosage: 2 G, UNKNOWN
     Route: 048
  5. TAUXIB [Suspect]
     Dosage: 30 MG, UNKNOWN
     Route: 048
  6. TAVOR /00273201/ [Suspect]
     Dosage: 25 MG, UNKNOWN
     Route: 048

REACTIONS (6)
  - Coma [Recovered/Resolved]
  - Respiratory arrest [Recovered/Resolved]
  - Pain [Recovered/Resolved]
  - Agitation [Recovered/Resolved]
  - Intentional overdose [Recovered/Resolved]
  - Drug abuse [Recovered/Resolved]
